FAERS Safety Report 16477092 (Version 1)
Quarter: 2019Q2

REPORT INFORMATION
  Report Type: Spontaneous
  Country: DE (occurrence: DE)
  Receive Date: 20190626
  Receipt Date: 20190626
  Transmission Date: 20190711
  Serious: Yes (Other)
  Sender: FDA-Public Use
  Company Number: DE-HORMOSAN PHARMA GMBH-2019-03867

PATIENT
  Age: 17 Year
  Sex: Male

DRUGS (3)
  1. QUETIAPIN-HORMOSAN 150 MG RETARDTABLETTEN [Suspect]
     Active Substance: QUETIAPINE FUMARATE
     Indication: INSOMNIA
     Dosage: 150 MILLIGRAM, BID
     Route: 065
  2. RISPERIDON [Concomitant]
     Active Substance: RISPERIDONE
     Indication: PRODUCT USED FOR UNKNOWN INDICATION
     Dosage: 1 MILLIGRAM, BID
     Route: 065
  3. QUETIAPIN-HORMOSAN 150 MG RETARDTABLETTEN [Suspect]
     Active Substance: QUETIAPINE FUMARATE
     Indication: ANXIETY

REACTIONS (3)
  - Product use issue [Unknown]
  - Off label use [Unknown]
  - Schizophreniform disorder [Unknown]
